FAERS Safety Report 20865287 (Version 1)
Quarter: 2022Q2

REPORT INFORMATION
  Report Type: Spontaneous
  Country: CN (occurrence: CN)
  Receive Date: 20220524
  Receipt Date: 20220524
  Transmission Date: 20220721
  Serious: Yes (Other)
  Sender: FDA-Public Use
  Company Number: CN-009507513-2205CHN005255

PATIENT
  Age: 32 Year
  Sex: Male
  Weight: 66.5 kg

DRUGS (5)
  1. INVANZ [Suspect]
     Active Substance: ERTAPENEM SODIUM
     Indication: Endocarditis
     Dosage: 1G, QD
     Route: 041
     Dates: start: 20220502, end: 20220508
  2. LEVOFLOXACIN [Suspect]
     Active Substance: LEVOFLOXACIN
     Indication: Endocarditis
     Dosage: 0.5G, QD
     Route: 041
     Dates: start: 20220430, end: 20220502
  3. VANCOMYCIN HYDROCHLORIDE [Suspect]
     Active Substance: VANCOMYCIN HYDROCHLORIDE
     Indication: Endocarditis
     Dosage: 0.5G, TID
     Route: 041
     Dates: start: 20220430, end: 20220513
  4. ENOXAPARIN SODIUM [Concomitant]
     Active Substance: ENOXAPARIN SODIUM
     Indication: Anticoagulant therapy
     Dosage: 4000IU, BID
     Route: 058
     Dates: start: 20220430, end: 20220505
  5. SODIUM CHLORIDE [Concomitant]
     Active Substance: SODIUM CHLORIDE
     Indication: Endocarditis
     Dosage: UNK
     Dates: start: 20220430, end: 20220502

REACTIONS (1)
  - Hepatocellular injury [Recovering/Resolving]

NARRATIVE: CASE EVENT DATE: 20220505
